FAERS Safety Report 23129463 (Version 1)
Quarter: 2023Q4

REPORT INFORMATION
  Report Type: Spontaneous
  Country: US (occurrence: None)
  Receive Date: 20231030
  Receipt Date: 20231030
  Transmission Date: 20240109
  Serious: No
  Sender: FDA-Public Use
  Company Number: None

PATIENT
  Age: 31 Year
  Sex: Female
  Weight: 101.25 kg

DRUGS (4)
  1. VANCOMYCIN [Suspect]
     Active Substance: VANCOMYCIN
     Indication: Guillain-Barre syndrome
     Dosage: FREQUENCY : 3 TIMES A DAY;?
     Route: 041
  2. VANCOMYCIN [Suspect]
     Active Substance: VANCOMYCIN
     Indication: Prophylaxis
  3. SODIUM CHLORIDE [Suspect]
     Active Substance: SODIUM CHLORIDE
     Indication: Guillain-Barre syndrome
     Dosage: FREQUENCY : 3 TIMES A DAY;?
     Route: 041
  4. SODIUM CHLORIDE [Suspect]
     Active Substance: SODIUM CHLORIDE
     Indication: Prophylaxis

REACTIONS (6)
  - Exposure during pregnancy [None]
  - Peripheral swelling [None]
  - Erythema [None]
  - Hypersensitivity [None]
  - Vancomycin infusion reaction [None]
  - Therapy cessation [None]

NARRATIVE: CASE EVENT DATE: 20231029
